FAERS Safety Report 6804584-5 (Version None)
Quarter: 2010Q2

REPORT INFORMATION
  Report Type: 
  Country: None (occurrence: None)
  Receive Date: 20100628
  Receipt Date: 20070409
  Transmission Date: 20101027
  Serious: No
  Sender: FDA-Public Use
  Company Number: US-PFIZER INC-2007028717

PATIENT
  Sex: Female
  Weight: 70.31 kg

DRUGS (4)
  1. GEODON [Suspect]
     Indication: DEPRESSION
     Dates: start: 20060801
  2. GEODON [Suspect]
     Indication: ANXIETY
  3. BENICAR [Concomitant]
  4. CYMBALTA [Concomitant]

REACTIONS (6)
  - ANXIETY [None]
  - DIZZINESS [None]
  - DRUG DOSE OMISSION [None]
  - PALPITATIONS [None]
  - RESTLESSNESS [None]
  - SYNCOPE [None]
